FAERS Safety Report 7809499-1 (Version None)
Quarter: 2011Q4

REPORT INFORMATION
  Report Type: 
  Country: None (occurrence: None)
  Receive Date: 20111012
  Receipt Date: 20111003
  Transmission Date: 20120403
  Serious: Yes (Hospitalization)
  Sender: FDA-Public Use
  Company Number: PHEH2011US02988

PATIENT
  Sex: Female

DRUGS (13)
  1. GILENYA [Suspect]
     Indication: RELAPSING-REMITTING MULTIPLE SCLEROSIS
     Dosage: 0.5 MG, QD
     Route: 048
     Dates: start: 20110222
  2. NAPROSYN [Concomitant]
     Dosage: 1 DF, BID
     Route: 048
  3. ZYPREXA [Concomitant]
     Dosage: 1 DF, BID
     Route: 048
  4. POTASSIUM CHLORIDE [Concomitant]
     Dosage: 2 DF, QD
     Route: 048
  5. GILENYA [Suspect]
     Dosage: 0.5 MG, QD
     Route: 048
  6. CYMBALTA [Concomitant]
     Dosage: 30 MG, QD
     Route: 048
  7. VALIUM [Concomitant]
     Dosage: 10 MG, Q6H
     Route: 048
  8. NORCO [Concomitant]
     Dosage: 10-325 MG, QD
     Route: 048
  9. PRILOSEC [Concomitant]
     Dosage: 1 DF, QD
     Route: 048
  10. PAXIL [Concomitant]
     Dosage: 1 DF, QD
     Route: 048
  11. KLOR-CON [Concomitant]
     Dosage: 1 DF, QD
     Route: 048
  12. LYRICA [Concomitant]
     Dosage: 1 DF, TID
     Route: 048
  13. PRINZIDE [Concomitant]
     Dosage: 20-25 MG, QD
     Route: 048

REACTIONS (19)
  - PARAESTHESIA [None]
  - GAIT DISTURBANCE [None]
  - TREMOR [None]
  - HYPERREFLEXIA [None]
  - BRADYCARDIA [None]
  - HYPOKALAEMIA [None]
  - ALTERED VISUAL DEPTH PERCEPTION [None]
  - DISINHIBITION [None]
  - HYPERTENSION [None]
  - HYPOAESTHESIA [None]
  - BALANCE DISORDER [None]
  - DISORIENTATION [None]
  - ACCIDENT [None]
  - VERTIGO [None]
  - MULTIPLE SCLEROSIS RELAPSE [None]
  - HEMIPARESIS [None]
  - ATAXIA [None]
  - HEADACHE [None]
  - INTERVERTEBRAL DISC DEGENERATION [None]
